FAERS Safety Report 13244142 (Version 1)
Quarter: 2017Q1

REPORT INFORMATION
  Report Type: Spontaneous
  Country: CA (occurrence: US)
  Receive Date: 20170217
  Receipt Date: 20170217
  Transmission Date: 20170428
  Serious: Yes (Hospitalization)
  Sender: FDA-Public Use
  Company Number: None

PATIENT
  Age: 36 Year
  Sex: Male
  Weight: 85.3 kg

DRUGS (1)
  1. TEMOZOLOMIDE. [Suspect]
     Active Substance: TEMOZOLOMIDE
     Dates: end: 20170116

REACTIONS (5)
  - Dyspnoea [None]
  - Product substitution issue [None]
  - Chest pain [None]
  - Musculoskeletal pain [None]
  - Pulmonary embolism [None]

NARRATIVE: CASE EVENT DATE: 20170202
